FAERS Safety Report 12834619 (Version 3)
Quarter: 2017Q1

REPORT INFORMATION
  Report Type: Spontaneous
  Country: NL (occurrence: NL)
  Receive Date: 20161010
  Receipt Date: 20170213
  Transmission Date: 20170428
  Serious: Yes (Hospitalization)
  Sender: FDA-Public Use
  Company Number: NL-PFIZER INC-2016395444

PATIENT
  Age: 54 Year
  Sex: Female

DRUGS (2)
  1. SOMAVERT [Suspect]
     Active Substance: PEGVISOMANT
     Indication: ACROMEGALY
     Dosage: 30 MG, 2X/WEEK
     Route: 058
  2. SOMAVERT [Suspect]
     Active Substance: PEGVISOMANT
     Dosage: OFF LABEL DOSAGE
     Route: 058
     Dates: start: 20160818

REACTIONS (3)
  - Pyrexia [Not Recovered/Not Resolved]
  - Urinary tract inflammation [Recovered/Resolved with Sequelae]
  - Off label use [Unknown]

NARRATIVE: CASE EVENT DATE: 20160818
